FAERS Safety Report 17858250 (Version 2)
Quarter: 2020Q2

REPORT INFORMATION
  Report Type: Report from Study
  Country: None (occurrence: US)
  Receive Date: 20200604
  Receipt Date: 20200605
  Transmission Date: 20200714
  Serious: No
  Sender: FDA-Public Use
  Company Number: US-US WORLDMEDS, LLC-USW201905-000922

PATIENT

DRUGS (3)
  1. APOKYN [Suspect]
     Active Substance: APOMORPHINE HYDROCHLORIDE
     Indication: PARKINSON^S DISEASE
     Dosage: IN-HOME INITIATION
     Dates: start: 20190507
  2. LEVODOPA [Concomitant]
     Active Substance: LEVODOPA
     Dates: start: 20190205
  3. TIGAN [Concomitant]
     Active Substance: TRIMETHOBENZAMIDE HYDROCHLORIDE
     Indication: VOMITING
     Dates: start: 20190428

REACTIONS (1)
  - Blood pressure decreased [Unknown]
